FAERS Safety Report 6306304-X (Version None)
Quarter: 2009Q3

REPORT INFORMATION
  Report Type: 
  Country: None (occurrence: None)
  Receive Date: 20090812
  Receipt Date: 20090731
  Transmission Date: 20100115
  Serious: Yes (Hospitalization, Other)
  Sender: FDA-Public Use
  Company Number: PHHY2009JP24340

PATIENT
  Sex: Male

DRUGS (5)
  1. TEGRETOL [Suspect]
     Indication: CONVULSION
     Dosage: 2.5 MG/KG PER DAY
     Route: 048
     Dates: start: 20090428, end: 20090502
  2. TEGRETOL [Suspect]
     Dosage: 10 MG/KG PER DAY
     Route: 048
     Dates: start: 20090502, end: 20090611
  3. DEPAKENE [Concomitant]
     Indication: CONVULSION
     Dosage: 400 MG/DAY
     Route: 048
     Dates: start: 20090409, end: 20090502
  4. LANDSEN [Concomitant]
     Indication: CONVULSION
     Dosage: UNK
     Route: 048
     Dates: start: 20090611
  5. LAMICTAL [Concomitant]
     Indication: CONVULSION
     Dosage: 4 MG, UNK
     Route: 048
     Dates: start: 20090701

REACTIONS (10)
  - ATYPICAL BENIGN PARTIAL EPILEPSY [None]
  - DYSCALCULIA [None]
  - EDUCATIONAL PROBLEM [None]
  - ELECTROENCEPHALOGRAM ABNORMAL [None]
  - EMOTIONAL DISORDER OF CHILDHOOD [None]
  - LISTLESS [None]
  - LOSS OF CONSCIOUSNESS [None]
  - PETIT MAL EPILEPSY [None]
  - READING DISORDER [None]
  - STATUS EPILEPTICUS [None]
